FAERS Safety Report 15391588 (Version 2)
Quarter: 2018Q4

REPORT INFORMATION
  Report Type: Report from Study
  Country: FR (occurrence: FR)
  Receive Date: 20180917
  Receipt Date: 20181012
  Transmission Date: 20190204
  Serious: Yes (Hospitalization, Other)
  Sender: FDA-Public Use
  Company Number: PHHY2018FR098175

PATIENT
  Age: 60 Year
  Sex: Male

DRUGS (18)
  1. ROCEPHINE [Concomitant]
     Active Substance: CEFTRIAXONE SODIUM
     Indication: PRODUCT USED FOR UNKNOWN INDICATION
     Dosage: 1 G, UNK
     Route: 065
  2. TAVANIC [Concomitant]
     Active Substance: LEVOFLOXACIN
     Indication: PRODUCT USED FOR UNKNOWN INDICATION
     Dosage: 500 MG, UNK
     Route: 065
  3. TAVANIC [Concomitant]
     Active Substance: LEVOFLOXACIN
     Dosage: UNK
  4. GILENYA [Suspect]
     Active Substance: FINGOLIMOD HYDROCHLORIDE
     Indication: RELAPSING-REMITTING MULTIPLE SCLEROSIS
     Dosage: 0.5 MG, QD
     Route: 065
     Dates: start: 20150618, end: 20151209
  5. SEROPLEX [Concomitant]
     Active Substance: ESCITALOPRAM OXALATE
     Indication: PRODUCT USED FOR UNKNOWN INDICATION
     Dosage: 20 MG, QD
     Route: 065
  6. SEROPLEX [Concomitant]
     Active Substance: ESCITALOPRAM OXALATE
     Dosage: UNK
  7. SOLU-MEDROL [Concomitant]
     Active Substance: METHYLPREDNISOLONE SODIUM SUCCINATE
     Dosage: UNK
  8. GILENYA [Suspect]
     Active Substance: FINGOLIMOD HYDROCHLORIDE
     Dosage: UNK
     Route: 065
     Dates: start: 201609
  9. SPIRIVA [Concomitant]
     Active Substance: TIOTROPIUM BROMIDE MONOHYDRATE
     Indication: PRODUCT USED FOR UNKNOWN INDICATION
     Dosage: 18 UG, QD
     Route: 065
  10. KARDEGIC [Concomitant]
     Active Substance: ASPIRIN DL-LYSINE
     Indication: PRODUCT USED FOR UNKNOWN INDICATION
     Dosage: 160 MG, QD
     Route: 065
  11. SYMBICORT [Concomitant]
     Active Substance: BUDESONIDE\FORMOTEROL FUMARATE DIHYDRATE
     Indication: PRODUCT USED FOR UNKNOWN INDICATION
     Dosage: 400/12 UG, BID
     Route: 065
  12. SIMVASTATIN. [Concomitant]
     Active Substance: SIMVASTATIN
     Indication: PRODUCT USED FOR UNKNOWN INDICATION
     Dosage: 10 MG, BID
     Route: 065
  13. KARDEGIC [Concomitant]
     Active Substance: ASPIRIN DL-LYSINE
     Dosage: 75 MG, QD
     Route: 065
  14. SOLU-MEDROL [Concomitant]
     Active Substance: METHYLPREDNISOLONE SODIUM SUCCINATE
     Indication: PRODUCT USED FOR UNKNOWN INDICATION
     Dosage: 100 MG, UNK
     Route: 065
  15. TERBUTALINA [Concomitant]
     Dosage: UNK
  16. LOXEN L P [Concomitant]
     Active Substance: NICARDIPINE HYDROCHLORIDE
     Indication: PRODUCT USED FOR UNKNOWN INDICATION
     Dosage: 50 MG, UNK
     Route: 065
  17. TERBUTALINA [Concomitant]
     Indication: PRODUCT USED FOR UNKNOWN INDICATION
     Dosage: UNK
     Route: 065
  18. ATROVENT [Concomitant]
     Active Substance: IPRATROPIUM BROMIDE
     Indication: PRODUCT USED FOR UNKNOWN INDICATION
     Dosage: 4 DF, QD
     Route: 065

REACTIONS (9)
  - Respiratory failure [Recovered/Resolved with Sequelae]
  - Chronic obstructive pulmonary disease [Recovered/Resolved with Sequelae]
  - Chronic obstructive pulmonary disease [Recovered/Resolved with Sequelae]
  - Chronic obstructive pulmonary disease [Recovered/Resolved with Sequelae]
  - Acute respiratory failure [Recovered/Resolved with Sequelae]
  - Respiratory acidosis [Unknown]
  - Pneumonia [Recovered/Resolved]
  - Asthenia [Unknown]
  - Chronic obstructive pulmonary disease [Recovered/Resolved with Sequelae]

NARRATIVE: CASE EVENT DATE: 20160703
